FAERS Safety Report 17063366 (Version 1)
Quarter: 2019Q4

REPORT INFORMATION
  Report Type: Spontaneous
  Country: US (occurrence: US)
  Receive Date: 20191121
  Receipt Date: 20191121
  Transmission Date: 20200122
  Serious: Yes (Other)
  Sender: FDA-Public Use
  Company Number: None

PATIENT
  Age: 7 Year
  Sex: Male
  Weight: 22.5 kg

DRUGS (1)
  1. GERICARE POLYETHYLENE GLYCOL 3350 POWDER FOR SOLUTION [Suspect]
     Active Substance: POLYETHYLENE GLYCOL 3350
     Indication: CONSTIPATION
     Dosage: ?          QUANTITY:1 CAPFUL;?
     Route: 048

REACTIONS (6)
  - Anxiety [None]
  - Aggression [None]
  - Anger [None]
  - Screaming [None]
  - Nausea [None]
  - Crying [None]

NARRATIVE: CASE EVENT DATE: 20191114
